FAERS Safety Report 8334012-2 (Version None)
Quarter: 2012Q2

REPORT INFORMATION
  Report Type: 
  Country: None (occurrence: None)
  Receive Date: 20120503
  Receipt Date: 20120426
  Transmission Date: 20120825
  Serious: Yes (Death, Hospitalization)
  Sender: FDA-Public Use
  Company Number: US-ROCHE-1059664

PATIENT
  Sex: Male
  Weight: 59 kg

DRUGS (11)
  1. KEPPRA [Concomitant]
     Route: 048
     Dates: start: 20110504
  2. LEVOTHYROXINE SODIUM [Concomitant]
     Route: 048
  3. DILANTIN [Concomitant]
     Route: 048
  4. DETROL LA [Concomitant]
     Route: 048
     Dates: start: 20120309
  5. OXYFAST [Concomitant]
     Route: 060
  6. SENNA-MINT WAF [Concomitant]
     Route: 048
  7. M.V.I. [Concomitant]
     Route: 048
     Dates: start: 20111205
  8. DRONABINOL [Concomitant]
     Route: 048
     Dates: start: 20120312, end: 20120322
  9. TARCEVA [Suspect]
     Indication: GLIOBLASTOMA MULTIFORME
     Route: 048
     Dates: start: 20110919, end: 20120320
  10. AVASTIN [Suspect]
     Indication: GLIOBLASTOMA MULTIFORME
     Route: 042
     Dates: start: 20110919, end: 20120312
  11. SYNTHROID [Concomitant]
     Route: 048
     Dates: start: 20120312

REACTIONS (3)
  - DISEASE PROGRESSION [None]
  - CONVULSION [None]
  - STATUS EPILEPTICUS [None]
